FAERS Safety Report 7622675-6 (Version None)
Quarter: 2011Q3

REPORT INFORMATION
  Report Type: 
  Country: None (occurrence: None)
  Receive Date: 20110712
  Receipt Date: 20110627
  Transmission Date: 20111222
  Serious: Yes (Life-Threatening, Hospitalization)
  Sender: FDA-Public Use
  Company Number: IPC201106-001922

PATIENT
  Age: 58 Year
  Sex: Male
  Weight: 90 kg

DRUGS (9)
  1. SERTRALINE HYDROCHLORIDE [Suspect]
  2. CLINDAMYCIN [Suspect]
     Indication: TOOTH EXTRACTION
  3. RABEPRAZOLE SODIUM [Suspect]
  4. METOCLOPRAMIDE HYDROCHLORIDE [Suspect]
     Indication: IMPAIRED GASTRIC EMPTYING
     Dosage: 10 MG ORALLY TWICE A DAY  ; EXCESS OF 5 OR MORE 10 MG EVERYDAY
  5. METOCLOPRAMIDE HYDROCHLORIDE [Suspect]
     Indication: ABDOMINAL DISCOMFORT
     Dosage: 10 MG ORALLY TWICE A DAY  ; EXCESS OF 5 OR MORE 10 MG EVERYDAY
  6. NEBIVOLOL [Concomitant]
  7. MESALAMINE [Suspect]
  8. VALSARTAN [Suspect]
  9. VENLAFAXINE [Suspect]

REACTIONS (14)
  - CLOSTRIDIUM DIFFICILE COLITIS [None]
  - HAEMODIALYSIS [None]
  - HAEMATOCRIT DECREASED [None]
  - DEHYDRATION [None]
  - OVERDOSE [None]
  - METABOLIC ACIDOSIS [None]
  - RENAL FAILURE ACUTE [None]
  - NEUROLEPTIC MALIGNANT SYNDROME [None]
  - BLOOD LACTIC ACID INCREASED [None]
  - BUNDLE BRANCH BLOCK LEFT [None]
  - TELANGIECTASIA [None]
  - CONVULSION [None]
  - HAEMOGLOBIN DECREASED [None]
  - CEREBRAL ISCHAEMIA [None]
